FAERS Safety Report 15292979 (Version 2)
Quarter: 2020Q2

REPORT INFORMATION
  Report Type: Spontaneous
  Country: CA (occurrence: CA)
  Receive Date: 20180819
  Receipt Date: 20200531
  Transmission Date: 20200713
  Serious: Yes (Hospitalization, Other)
  Sender: FDA-Public Use
  Company Number: CA-BAXTER-2018BAX021586

PATIENT

DRUGS (1)
  1. 0.9% SODIUM CHLORIDE INJECTION [Suspect]
     Active Substance: SODIUM CHLORIDE
     Indication: END STAGE RENAL DISEASE
     Dosage: DOSAGE FORM: SOLUTION INTRAVENOUS
     Route: 065

REACTIONS (1)
  - Sepsis [Unknown]
